FAERS Safety Report 5840525-5 (Version None)
Quarter: 2008Q3

REPORT INFORMATION
  Report Type: 
  Country: None (occurrence: None)
  Receive Date: 20080807
  Receipt Date: 20080807
  Transmission Date: 20090109
  Serious: Yes (Death, Hospitalization)
  Sender: FDA-Public Use
  Company Number: None

PATIENT
  Sex: Male
  Weight: 86.1834 kg

DRUGS (4)
  1. OMEPRAZOLE [Suspect]
     Indication: GASTRITIS
     Dosage: IV
     Route: 042
     Dates: start: 20080228, end: 20080325
  2. OMEPRAZOLE [Suspect]
     Indication: HELICOBACTER GASTRITIS
     Dosage: IV
     Route: 042
     Dates: start: 20080228, end: 20080325
  3. OMEPRAZOLE [Suspect]
     Indication: ULCER
     Dosage: IV
     Route: 042
     Dates: start: 20080228, end: 20080325
  4. OMEPRAZOLE [Suspect]
     Indication: GASTRITIS
     Dosage: CORONER HAS GP RECOR DAILY PO
     Route: 048

REACTIONS (11)
  - AORTIC ARTERIOSCLEROSIS [None]
  - BONE MARROW FAILURE [None]
  - CARDIAC DISORDER [None]
  - DRUG TOXICITY [None]
  - FIBROSIS [None]
  - HEPATIC FIBROSIS [None]
  - HEPATIC STEATOSIS [None]
  - NEUTROPENIC SEPSIS [None]
  - PULMONARY CONGESTION [None]
  - PULMONARY OEDEMA [None]
  - SEPSIS [None]
